FAERS Safety Report 6405348-7 (Version None)
Quarter: 2009Q4

REPORT INFORMATION
  Report Type: 
  Country: None (occurrence: None)
  Receive Date: 20091019
  Receipt Date: 20091008
  Transmission Date: 20100525
  Serious: Yes (Other)
  Sender: FDA-Public Use
  Company Number: PHEH2007US03193

PATIENT
  Sex: Female

DRUGS (10)
  1. ZOMETA [Suspect]
     Dosage: UNK
     Route: 042
     Dates: start: 20050101
  2. POTASSIUM CHLORIDE [Concomitant]
  3. PENICILLIN ^GRUNENTHAL^ [Concomitant]
  4. CLINDAMYCIN [Concomitant]
  5. SERTRALINE HCL [Concomitant]
  6. SIMVASTATIN [Concomitant]
  7. TUSSIONEX [Concomitant]
  8. DOXYCYCLINE [Concomitant]
  9. ECONAZOLE NITRATE [Concomitant]
  10. TRIAMCINOLONE ACETONIDE DIPOTASSIUM PHOSPHATE [Concomitant]

REACTIONS (11)
  - ANXIETY [None]
  - DECREASED INTEREST [None]
  - DENTURE WEARER [None]
  - GENERAL PHYSICAL HEALTH DETERIORATION [None]
  - IMPAIRED HEALING [None]
  - LESION EXCISION [None]
  - MUSCLE TIGHTNESS [None]
  - OSTEONECROSIS [None]
  - PAIN [None]
  - PRIMARY SEQUESTRUM [None]
  - TOOTH EXTRACTION [None]
